FAERS Safety Report 9455269 (Version 2)
Quarter: 2013Q3

REPORT INFORMATION
  Report Type: Spontaneous
  Country: US (occurrence: US)
  Receive Date: 20130813
  Receipt Date: 20130919
  Transmission Date: 20140515
  Serious: Yes (Hospitalization, Other)
  Sender: FDA-Public Use
  Company Number: US-BAYER-2013-095342

PATIENT
  Age: 23 Year
  Sex: Female

DRUGS (6)
  1. YAZ [Suspect]
     Dosage: UNK
     Dates: start: 200808, end: 201108
  2. RITALIN [Concomitant]
  3. CELEXA [Concomitant]
  4. CITALOPRAM [Concomitant]
  5. PEPCID [Concomitant]
  6. OMEPRAZOLE [Concomitant]

REACTIONS (8)
  - Pulmonary embolism [Recovered/Resolved]
  - Myocardial infarction [None]
  - Injury [Recovered/Resolved]
  - Pain [Recovered/Resolved]
  - General physical health deterioration [Recovered/Resolved]
  - Emotional distress [None]
  - Anxiety [None]
  - Pain [None]
